FAERS Safety Report 15037833 (Version 3)
Quarter: 2018Q4

REPORT INFORMATION
  Report Type: Report from Study
  Country: US (occurrence: US)
  Receive Date: 20180620
  Receipt Date: 20181127
  Transmission Date: 20190204
  Serious: Yes (Hospitalization)
  Sender: FDA-Public Use
  Company Number: US-ACTELION-A-US2018-173752

PATIENT
  Age: 66 Year
  Sex: Female

DRUGS (1)
  1. OPSUMIT [Suspect]
     Active Substance: MACITENTAN
     Indication: PULMONARY ARTERIAL HYPERTENSION
     Dosage: 10 MG, QD
     Route: 048
     Dates: start: 20170825, end: 201808

REACTIONS (6)
  - Headache [Unknown]
  - Gastrointestinal disorder [Unknown]
  - Product dose omission [Unknown]
  - Small intestinal obstruction [Unknown]
  - Hernia [Unknown]
  - Hypoaesthesia [Unknown]
